FAERS Safety Report 9445264 (Version 1)
Quarter: 2013Q3

REPORT INFORMATION
  Report Type: Spontaneous
  Country: KR (occurrence: KR)
  Receive Date: 20130807
  Receipt Date: 20130807
  Transmission Date: 20140515
  Serious: Yes (Disabling)
  Sender: FDA-Public Use
  Company Number: KR-ALLERGAN-1311572US

PATIENT
  Age: 72 Year
  Sex: Female

DRUGS (2)
  1. ALPHAGAN P [Suspect]
     Indication: PRODUCT USED FOR UNKNOWN INDICATION
     Dosage: UNK DOSE, TWICE DAILY
     Route: 047
     Dates: end: 20130717
  2. XALATAN [Concomitant]
     Indication: OCULAR HYPERTENSION
     Dosage: UNK
     Route: 047

REACTIONS (3)
  - Corneal perforation [Not Recovered/Not Resolved]
  - Visual acuity reduced [Not Recovered/Not Resolved]
  - Eye pruritus [Recovered/Resolved]
